FAERS Safety Report 12041767 (Version 2)
Quarter: 2016Q1

REPORT INFORMATION
  Report Type: Spontaneous
  Country: FI (occurrence: FI)
  Receive Date: 20160208
  Receipt Date: 20160307
  Transmission Date: 20160526
  Serious: Yes (Other)
  Sender: FDA-Public Use
  Company Number: FI-ELI_LILLY_AND_COMPANY-FI201602000227

PATIENT
  Age: 0 Day
  Sex: Female
  Weight: 3.6 kg

DRUGS (8)
  1. ZYPADHERA [Suspect]
     Active Substance: OLANZAPINE PAMOATE
     Dosage: 405 MG, OTHER
     Route: 064
  2. OPAMOX [Concomitant]
     Dosage: 30 MG, PRN
     Route: 064
  3. ALBETOL [Concomitant]
     Dosage: 200 MG, BID
     Route: 064
  4. ZYPADHERA [Suspect]
     Active Substance: OLANZAPINE PAMOATE
     Indication: SCHIZOPHRENIA
     Dosage: 300 MG, OTHER
     Route: 064
  5. ZYPADHERA [Suspect]
     Active Substance: OLANZAPINE PAMOATE
     Indication: SCHIZOPHRENIA
     Dosage: 300 MG, OTHER
     Route: 064
  6. OPAMOX [Concomitant]
     Dosage: 30 MG, PRN
     Route: 064
  7. ALBETOL [Concomitant]
     Dosage: 200 MG, BID
     Route: 064
  8. ZYPADHERA [Suspect]
     Active Substance: OLANZAPINE PAMOATE
     Dosage: 405 MG, OTHER
     Route: 064

REACTIONS (2)
  - Foetal exposure during pregnancy [Recovered/Resolved]
  - Umbilical cord around neck [Recovered/Resolved]

NARRATIVE: CASE EVENT DATE: 20150215
